FAERS Safety Report 25929685 (Version 1)
Quarter: 2025Q4

REPORT INFORMATION
  Report Type: Spontaneous
  Country: US (occurrence: US)
  Receive Date: 20251016
  Receipt Date: 20251016
  Transmission Date: 20260118
  Serious: Yes (Hospitalization)
  Sender: MYLAN
  Company Number: US-MYLANLABS-2025M1087793

PATIENT
  Age: 10 Year
  Sex: Male

DRUGS (16)
  1. GABAPENTIN [Suspect]
     Active Substance: GABAPENTIN
     Indication: Dermatitis atopic
     Dosage: 100 MILLIGRAM, PM (NIGHTLY)
  2. GABAPENTIN [Suspect]
     Active Substance: GABAPENTIN
     Dosage: 400 MILLIGRAM, PM (NIGHTLY)
  3. TACROLIMUS [Suspect]
     Active Substance: TACROLIMUS
     Indication: Dermatitis atopic
     Dosage: UNK, BID
  4. CLOBETASOL [Suspect]
     Active Substance: CLOBETASOL
     Indication: Dermatitis atopic
     Dosage: UNK, BID
  5. DUPILUMAB [Suspect]
     Active Substance: DUPILUMAB
     Indication: Dermatitis atopic
     Dosage: 400 MILLIGRAM, Q2W
  6. DUPILUMAB [Suspect]
     Active Substance: DUPILUMAB
     Dosage: 200 MILLIGRAM, Q2W
  7. LIDOCAINE [Suspect]
     Active Substance: LIDOCAINE
     Indication: Dermatitis atopic
     Dosage: UNK
  8. MONTELUKAST [Suspect]
     Active Substance: MONTELUKAST
     Indication: Dermatitis atopic
     Dosage: UNK
  9. OMALIZUMAB [Suspect]
     Active Substance: OMALIZUMAB
     Indication: Dermatitis atopic
     Dosage: UNK
  10. CYCLOSPORINE [Concomitant]
     Active Substance: CYCLOSPORINE
     Indication: Dermatitis atopic
     Dosage: 75 MILLIGRAM, BID
  11. CYCLOSPORINE [Concomitant]
     Active Substance: CYCLOSPORINE
     Dosage: 5 MILLIGRAM/KILOGRAM, QD
  12. CYCLOSPORINE [Concomitant]
     Active Substance: CYCLOSPORINE
     Dosage: 5 MILLIGRAM/KILOGRAM, QD
  13. CYCLOSPORINE [Concomitant]
     Active Substance: CYCLOSPORINE
     Dosage: 7 MILLIGRAM/KILOGRAM, QD
  14. PREDNISONE [Concomitant]
     Active Substance: PREDNISONE
     Indication: Dermatitis atopic
     Dosage: 60 MILLIGRAM
  15. PREDNISONE [Concomitant]
     Active Substance: PREDNISONE
     Dosage: TAPERED TO 20 MG
  16. PREDNISONE [Concomitant]
     Active Substance: PREDNISONE
     Dosage: TAPER TO 60?10 MG DAILY

REACTIONS (2)
  - Drug ineffective [Unknown]
  - Off label use [Unknown]
